FAERS Safety Report 10246728 (Version 1)
Quarter: 2014Q2

REPORT INFORMATION
  Report Type: Spontaneous
  Country: GR (occurrence: GR)
  Receive Date: 20140619
  Receipt Date: 20140619
  Transmission Date: 20141212
  Serious: Yes (Other)
  Sender: FDA-Public Use
  Company Number: GR-ASTRAZENECA-2014SE40755

PATIENT
  Age: 71 Year
  Sex: Male

DRUGS (10)
  1. PROPOFOL [Suspect]
     Indication: GENERAL ANAESTHESIA
     Route: 042
  2. PROPOFOL [Suspect]
     Indication: MAINTENANCE OF ANAESTHESIA
     Route: 042
  3. PROPOFOL [Suspect]
     Indication: GENERAL ANAESTHESIA
     Dosage: 2 MG/KG/H AND WAS GRADUALLY INCREASED TO A MAXIMUM OF 5 MG/KG/H
     Route: 042
  4. PROPOFOL [Suspect]
     Indication: MAINTENANCE OF ANAESTHESIA
     Dosage: 2 MG/KG/H AND WAS GRADUALLY INCREASED TO A MAXIMUM OF 5 MG/KG/H
     Route: 042
  5. PROPOFOL [Suspect]
     Indication: GENERAL ANAESTHESIA
     Dosage: 0.4 MG/KG/H
     Route: 042
  6. PROPOFOL [Suspect]
     Indication: MAINTENANCE OF ANAESTHESIA
     Dosage: 0.4 MG/KG/H
     Route: 042
  7. MIDAZOLAM [Concomitant]
     Indication: ANAESTHESIA
  8. FENTANYL [Concomitant]
     Indication: ANAESTHESIA
  9. SUCCINYLCHOLINE [Concomitant]
     Indication: ANAESTHESIA
  10. NORMAL SALINE [Concomitant]
     Indication: FLUID REPLACEMENT

REACTIONS (1)
  - Propofol infusion syndrome [Unknown]
